FAERS Safety Report 24357522 (Version 1)
Quarter: 2024Q3

REPORT INFORMATION
  Report Type: Spontaneous
  Country: US (occurrence: US)
  Receive Date: 20240924
  Receipt Date: 20240924
  Transmission Date: 20241017
  Serious: No
  Sender: INSUD PHARMA
  Company Number: US-INSUD PHARMA-2409US07039

PATIENT

DRUGS (2)
  1. SLYND [Suspect]
     Active Substance: DROSPIRENONE
     Indication: Intermenstrual bleeding
     Dosage: UNKNOWN
     Route: 048
  2. SLYND [Suspect]
     Active Substance: DROSPIRENONE
     Indication: Premenstrual syndrome

REACTIONS (2)
  - Amenorrhoea [Not Recovered/Not Resolved]
  - Product use in unapproved indication [Not Recovered/Not Resolved]
